FAERS Safety Report 6816514-0 (Version None)
Quarter: 2010Q2

REPORT INFORMATION
  Report Type: 
  Country: None (occurrence: None)
  Receive Date: 20100630
  Receipt Date: 20100617
  Transmission Date: 20101027
  Serious: Yes (Other)
  Sender: FDA-Public Use
  Company Number: TCI2010A02337

PATIENT
  Sex: Male

DRUGS (3)
  1. ACTOS [Suspect]
     Indication: TYPE 2 DIABETES MELLITUS
     Dosage: (1 IN 1 D) PER ORAL
     Route: 048
  2. MP-513 (CODE NOT BROKEN) (ORAL ANTIDIABETICS) [Suspect]
     Indication: TYPE 2 DIABETES MELLITUS
     Dosage: MP-513 OR PLACEBO (1 IN 1 D) PER ORAL
     Route: 048
     Dates: start: 20100314
  3. CRESTOR [Concomitant]

REACTIONS (2)
  - PAIN IN EXTREMITY [None]
  - PROSTATE CANCER [None]
